FAERS Safety Report 20082571 (Version 1)
Quarter: 2021Q4

REPORT INFORMATION
  Report Type: Spontaneous
  Country: DE (occurrence: DE)
  Receive Date: 20211117
  Receipt Date: 20211117
  Transmission Date: 20220303
  Serious: Yes (Hospitalization)
  Sender: FDA-Public Use
  Company Number: DE-ADRED-07054-01

PATIENT
  Age: 84 Year
  Sex: Male

DRUGS (13)
  1. XIPAMIDE [Suspect]
     Active Substance: XIPAMIDE
     Indication: Product used for unknown indication
     Dosage: 10 MILLIGRAM, QD (10 MG, 1-0-0-0, TABLETTEN )
     Route: 048
  2. RIVAROXABAN [Suspect]
     Active Substance: RIVAROXABAN
     Indication: Product used for unknown indication
     Dosage: 20 MILLIGRAM, QD (20 MG, 1-0-0-0, TABLETTEN )
     Route: 048
  3. TORSEMIDE [Suspect]
     Active Substance: TORSEMIDE
     Indication: Product used for unknown indication
     Dosage: 10 MILLIGRAM, QD (10 MG, 1-0-0-0, TABLETTEN)
     Route: 048
  4. ALDACTONE [Suspect]
     Active Substance: SPIRONOLACTONE
     Indication: Product used for unknown indication
     Dosage: 25 MILLIGRAM, QD (25 MG, 0-1-0-0, TABLETTEN)
     Route: 048
  5. BENSERAZIDE HYDROCHLORIDE\LEVODOPA [Concomitant]
     Active Substance: BENSERAZIDE HYDROCHLORIDE\LEVODOPA
     Dosage: UNK, QD (1-0-0-0, TABLETTEN)
     Route: 048
  6. ALBUTEROL [Concomitant]
     Active Substance: ALBUTEROL
     Dosage: BEI BEDARF, DOSIERAEROSOL
     Route: 055
  7. STALEVO                            /01631201/ [Concomitant]
     Dosage: 175 MILLIGRAM, QD (175 MG, 0-1-0-0, TABLETTEN)
     Route: 048
  8. STALEVO                            /01631201/ [Concomitant]
     Dosage: 150 MILLIGRAM, QD (150 MG, 1-0-0-0, TABLETTEN   )
     Route: 048
  9. STALEVO                            /01631201/ [Concomitant]
     Dosage: 150 MILLIGRAM, QD (150 MG, 0-0-1-0, TABLETTEN)
     Route: 048
  10. FLUTICASONE [Concomitant]
     Active Substance: FLUTICASONE
     Dosage: UNK UNK, BID (1-0-1-0)
  11. KALINOR-RETARD P [Concomitant]
     Dosage: UNK UNK, BID (1-1-0-0, TABLETTEN)
     Route: 048
  12. MOMETASONE FUROATE [Concomitant]
     Active Substance: MOMETASONE FUROATE
     Dosage: 0.05 MICROGRAM, BID (0.05 ?G, 1-0-1-0)
  13. TIOTROPIUM BROMIDE [Concomitant]
     Active Substance: TIOTROPIUM BROMIDE
     Dosage: 2.5 MICROGRAM (2.5 ?G, 2-0-0-0, DOSIERAEROSOL)
     Route: 055

REACTIONS (4)
  - Hypotonia [Unknown]
  - Hypotension [Unknown]
  - Fatigue [Unknown]
  - General physical health deterioration [Unknown]
